FAERS Safety Report 5745167-8 (Version None)
Quarter: 2008Q2

REPORT INFORMATION
  Report Type: 
  Country: None (occurrence: None)
  Receive Date: 20080521
  Receipt Date: 20080514
  Transmission Date: 20081010
  Serious: Yes (Hospitalization)
  Sender: FDA-Public Use
  Company Number: CA-BAYER-200811913BCC

PATIENT
  Age: 42 Year
  Sex: Female

DRUGS (7)
  1. ASPIRIN [Suspect]
     Indication: NON-CARDIAC CHEST PAIN
     Dosage: UNIT DOSE: 1 DF
     Route: 048
     Dates: start: 20080201
  2. CELECOXIB [Concomitant]
  3. FLURAZEPAM HYDROCHLORIDE [Concomitant]
  4. FIORINAL [Concomitant]
  5. IBUPROFEN [Concomitant]
  6. GABAPENTIN [Concomitant]
  7. COPAXONE [Concomitant]
     Indication: MULTIPLE SCLEROSIS
     Dosage: TOTAL DAILY DOSE: 20 MG
     Route: 058
     Dates: start: 20020920

REACTIONS (1)
  - ENDOTRACHEAL INTUBATION [None]
